FAERS Safety Report 8874659 (Version 1)
Quarter: 2012Q4

REPORT INFORMATION
  Report Type: 
  Country: DK (occurrence: GB)
  Receive Date: 20121023
  Receipt Date: 20121023
  Transmission Date: 20130627
  Serious: Yes (Other)
  Sender: FDA-Public Use
  Company Number: GB-FRI-1000039658

PATIENT
  Age: 65 Year
  Sex: Female

DRUGS (1)
  1. CITALOPRAM [Suspect]
     Dosage: 20 mg
     Route: 048

REACTIONS (3)
  - Catatonia [Recovering/Resolving]
  - Paralysis [Recovering/Resolving]
  - Withdrawal syndrome [Unknown]
